FAERS Safety Report 6551294-8 (Version None)
Quarter: 2010Q2

REPORT INFORMATION
  Report Type: 
  Country: None (occurrence: None)
  Receive Date: 20100126
  Receipt Date: 20100113
  Transmission Date: 20101027
  Serious: Yes (Other)
  Sender: FDA-Public Use
  Company Number: US-RB-000998-10

PATIENT
  Age: 24 Month
  Sex: Female
  Weight: 13.5 kg

DRUGS (1)
  1. MUCINEX [Suspect]
     Dosage: 1/2 TEASPOON GIVEN
     Route: 048
     Dates: start: 20100113

REACTIONS (2)
  - DRUG ADMINISTRATION ERROR [None]
  - EPISTAXIS [None]
